FAERS Safety Report 5216703-5 (Version None)
Quarter: 2007Q1

REPORT INFORMATION
  Report Type: 
  Country: None (occurrence: None)
  Receive Date: 20061130
  Receipt Date: 20060929
  Transmission Date: 20070707
  Serious: Yes (Hospitalization)
  Sender: FDA-Public Use
  Company Number: US200603003364

PATIENT
  Age: 53 Year
  Sex: Male
  Weight: 117 kg

DRUGS (4)
  1. ZYPREXA [Suspect]
     Indication: DEPRESSION
     Dosage: 5 MG
     Dates: start: 19980101, end: 20020101
  2. WELLBUTRIN [Concomitant]
  3. EFFEXOR [Concomitant]
  4. REMERON [Concomitant]
     Dates: start: 19980101, end: 20020101

REACTIONS (3)
  - BLOOD GLUCOSE ABNORMAL [None]
  - DIABETES MELLITUS [None]
  - HYPERTENSION [None]
